FAERS Safety Report 4329223-7 (Version None)
Quarter: 2004Q1

REPORT INFORMATION
  Report Type: 
  Country: None (occurrence: None)
  Receive Date: 20040319
  Receipt Date: 20040218
  Transmission Date: 20041129
  Serious: No
  Sender: FDA-Public Use
  Company Number: US-JNJFOC-20040204638

PATIENT
  Age: 22 Year
  Sex: Female
  Weight: 40.8237 kg

DRUGS (2)
  1. ORTHO EVRA [Suspect]
     Indication: CONTRACEPTION
     Dosage: 1 DOSE(S), 3 IN 4 WEEK, TRANSDERMAL
     Route: 062
     Dates: start: 20040208, end: 20040218
  2. LACTAID () TILACTASE [Concomitant]

REACTIONS (6)
  - BREAST TENDERNESS [None]
  - DIARRHOEA [None]
  - DRY SKIN [None]
  - MIGRAINE [None]
  - NAUSEA [None]
  - WEIGHT DECREASED [None]
